FAERS Safety Report 14757733 (Version 1)
Quarter: 2018Q2

REPORT INFORMATION
  Report Type: Spontaneous
  Country: RU (occurrence: RU)
  Receive Date: 20180413
  Receipt Date: 20180413
  Transmission Date: 20180711
  Serious: Yes (Death, Hospitalization)
  Sender: FDA-Public Use
  Company Number: RU-ACTELION-A-CH2018-170306

PATIENT
  Age: 33 Year
  Sex: Female

DRUGS (3)
  1. SILDENAFIL. [Concomitant]
     Active Substance: SILDENAFIL
     Indication: PULMONARY ARTERIAL HYPERTENSION
     Dosage: UNK
     Dates: start: 2013
  2. SILDENAFIL. [Concomitant]
     Active Substance: SILDENAFIL
     Dosage: UNK
     Dates: start: 2017
  3. TRACLEER [Suspect]
     Active Substance: BOSENTAN
     Indication: PULMONARY ARTERIAL HYPERTENSION
     Dosage: 125 MG, BID
     Route: 048
     Dates: start: 2017, end: 201803

REACTIONS (3)
  - Condition aggravated [Unknown]
  - Pneumonia [Fatal]
  - Pulmonary arterial hypertension [Unknown]

NARRATIVE: CASE EVENT DATE: 201803
